FAERS Safety Report 9171451 (Version 3)
Quarter: 2013Q2

REPORT INFORMATION
  Report Type: Spontaneous
  Country: US (occurrence: None)
  Receive Date: 20130305
  Receipt Date: 20130528
  Transmission Date: 20140414
  Serious: Yes (Hospitalization)
  Sender: FDA-Public Use
  Company Number: 2013034822

PATIENT
  Age: 54 Year
  Sex: Female
  Weight: 117.48 kg

DRUGS (13)
  1. ZEMAIRA [Suspect]
     Indication: ALPHA-1 ANTI-TRYPSIN DEFICIENCY
     Dosage: 60 MG 1/7 DAYS INTRAVENOUS (NOT OTHERWISE SPECIFIED))
     Route: 042
     Dates: start: 20130214, end: 20130214
  2. PERCOCET (OXYCOCET) [Concomitant]
  3. DOXYCYCLINE (DOXYCYCLINE) [Concomitant]
  4. SODIUM CHLORIDE [Concomitant]
  5. EPI-PEN (EPINEPHRINE HYDROCHLORIDE) [Concomitant]
  6. MINVEY (ESTRADIOL) [Concomitant]
  7. OXYGEN (OXYGEN) [Concomitant]
  8. ADVIL (IBUPROFEN) [Concomitant]
  9. OMEPRAZOLE (OMEPRAZOLE) [Concomitant]
  10. LMX (LIDOCAINE) [Concomitant]
  11. PROVENTIL (SALBUTAMOL) [Concomitant]
  12. ADVAIR (SERETIDE /01420901/) [Concomitant]
  13. SPIRIVA (TIOTROPIUM BROMIDE) [Concomitant]

REACTIONS (5)
  - Pain in extremity [None]
  - Back pain [None]
  - Infusion related reaction [None]
  - Pain [None]
  - Chest pain [None]
